FAERS Safety Report 15542672 (Version 1)
Quarter: 2018Q4

REPORT INFORMATION
  Report Type: Spontaneous
  Country: IT (occurrence: IT)
  Receive Date: 20181023
  Receipt Date: 20181023
  Transmission Date: 20190205
  Serious: Yes (Other)
  Sender: FDA-Public Use
  Company Number: IT-EPIC PHARMA LLC-2018EPC00438

PATIENT
  Sex: Male
  Weight: 2.92 kg

DRUGS (1)
  1. MORPHINE SULFATE. [Suspect]
     Active Substance: MORPHINE SULFATE
     Dosage: 0.1 MG/KG, ONCE
     Route: 064

REACTIONS (1)
  - Supraventricular tachycardia [Recovered/Resolved]
